FAERS Safety Report 9207221 (Version 2)
Quarter: 2013Q1

REPORT INFORMATION
  Report Type: Spontaneous
  Country: US (occurrence: None)
  Receive Date: 20120802
  Receipt Date: 20120802
  Transmission Date: 20140127
  Serious: Yes (Other)
  Sender: FDA-Public Use
  Company Number: AMAG201200037

PATIENT
  Age: 45 Year
  Sex: Female
  Weight: 152.4 kg

DRUGS (1)
  1. FERAHEME (FERUMOXYTOL) INJECTION, 510MG [Suspect]
     Indication: IRON DEFICIENCY ANAEMIA
     Route: 042
     Dates: start: 20120207, end: 20120207

REACTIONS (4)
  - Chest pain [None]
  - Dyspnoea [None]
  - Flushing [None]
  - Arthralgia [None]
